FAERS Safety Report 9216778 (Version 3)
Quarter: 2013Q2

REPORT INFORMATION
  Report Type: Spontaneous
  Country: US (occurrence: US)
  Receive Date: 20130408
  Receipt Date: 20130606
  Transmission Date: 20140414
  Serious: Yes (Death)
  Sender: FDA-Public Use
  Company Number: US-PFIZER INC-2013108449

PATIENT
  Age: 20 Year
  Sex: Male

DRUGS (2)
  1. RAPAMUNE [Suspect]
     Indication: BRAIN NEOPLASM
     Dosage: 5 MG, 1X/DAY
     Route: 048
     Dates: start: 20121129, end: 20130108
  2. TARCEVA [Concomitant]
     Dosage: 150 MG, 1X/DAY
     Dates: end: 20130121

REACTIONS (3)
  - Brain neoplasm [Fatal]
  - Disease progression [Fatal]
  - Off label use [Unknown]
